FAERS Safety Report 6518954-6 (Version None)
Quarter: 2009Q4

REPORT INFORMATION
  Report Type: 
  Country: None (occurrence: None)
  Receive Date: 20091228
  Receipt Date: 20091201
  Transmission Date: 20100525
  Serious: Yes (Other)
  Sender: FDA-Public Use
  Company Number: US-SANOFI-AVENTIS-A03200904264

PATIENT
  Age: 71 Year
  Sex: Female
  Weight: 97.7 kg

DRUGS (8)
  1. DRONEDARONE [Suspect]
     Dosage: UNIT DOSE: 400 MG
     Route: 048
     Dates: start: 20090902, end: 20090908
  2. DRONEDARONE [Suspect]
     Dosage: UNIT DOSE: 400 MG
     Route: 048
     Dates: start: 20090902, end: 20090908
  3. SYNTHROID [Concomitant]
     Indication: HYPOTHYROIDISM
     Route: 048
     Dates: start: 19870101
  4. HYDRALAZINE HCL [Concomitant]
     Indication: BLOOD PRESSURE
     Route: 048
     Dates: start: 20050101
  5. CYTOMEL [Concomitant]
     Indication: THYROID DISORDER
     Route: 048
     Dates: start: 20080101
  6. PRAVASTATIN [Concomitant]
     Route: 048
     Dates: start: 20070101
  7. ACETAZOLAMIDE [Concomitant]
     Indication: GLAUCOMA
     Route: 048
     Dates: start: 20090101
  8. FLECAINIDE ACETATE [Concomitant]
     Indication: ATRIAL FIBRILLATION

REACTIONS (8)
  - ASTHENIA [None]
  - ATRIAL FIBRILLATION [None]
  - CONDITION AGGRAVATED [None]
  - DIARRHOEA [None]
  - DYSPNOEA [None]
  - FLATULENCE [None]
  - IRRITABLE BOWEL SYNDROME [None]
  - NAUSEA [None]
